FAERS Safety Report 24627336 (Version 1)
Quarter: 2024Q4

REPORT INFORMATION
  Report Type: Spontaneous
  Country: US (occurrence: US)
  Receive Date: 20241116
  Receipt Date: 20241116
  Transmission Date: 20250115
  Serious: No
  Sender: AMNEAL
  Company Number: US-AMNEAL PHARMACEUTICALS-2023-AMRX-04635

PATIENT
  Sex: Female

DRUGS (1)
  1. ESTRADIOL TRANSDERMAL SYSTEM [Suspect]
     Active Substance: ESTRADIOL
     Indication: Product used for unknown indication
     Dosage: TRANSDERMAL PATCH 0.05MG.
     Route: 062

REACTIONS (4)
  - Application site discolouration [Unknown]
  - Application site inflammation [Unknown]
  - Application site rash [Unknown]
  - Application site pruritus [Unknown]

NARRATIVE: CASE EVENT DATE: 20231201
